FAERS Safety Report 20780983 (Version 4)
Quarter: 2022Q2

REPORT INFORMATION
  Report Type: Report from Study
  Country: AU (occurrence: AU)
  Receive Date: 20220504
  Receipt Date: 20220525
  Transmission Date: 20220721
  Serious: Yes (Hospitalization)
  Sender: FDA-Public Use
  Company Number: AU-BRISTOL-MYERS SQUIBB COMPANY-BMS-2022-006961

PATIENT
  Age: 67 Year
  Sex: Male
  Weight: 70.4 kg

DRUGS (2)
  1. NIVOLUMAB [Suspect]
     Active Substance: NIVOLUMAB
     Indication: Oesophageal carcinoma
     Dosage: 240 MILLIGRAM
     Route: 042
     Dates: start: 20211105, end: 20220408
  2. REGORAFENIB [Suspect]
     Active Substance: REGORAFENIB
     Indication: Oesophageal carcinoma
     Dosage: 90 MILLIGRAM
     Route: 048
     Dates: start: 20211105, end: 20220408

REACTIONS (3)
  - Pyrexia [Not Recovered/Not Resolved]
  - Infection [Unknown]
  - Arthralgia [Recovered/Resolved]

NARRATIVE: CASE EVENT DATE: 20220111
